FAERS Safety Report 23853436 (Version 1)
Quarter: 2024Q2

REPORT INFORMATION
  Report Type: Spontaneous
  Country: CH (occurrence: CH)
  Receive Date: 20240514
  Receipt Date: 20240514
  Transmission Date: 20240716
  Serious: Yes (Death, Other)
  Sender: FDA-Public Use
  Company Number: CH-SUN PHARMACEUTICAL INDUSTRIES LTD-2024R1-445584

PATIENT
  Age: 44 Year
  Sex: Male

DRUGS (1)
  1. PAZOPANIB [Suspect]
     Active Substance: PAZOPANIB
     Indication: Solitary fibrous tumour
     Dosage: UNK
     Route: 065
     Dates: start: 2022

REACTIONS (2)
  - Cerebral haemorrhage [Fatal]
  - Disease progression [Fatal]

NARRATIVE: CASE EVENT DATE: 20230101
